FAERS Safety Report 9276420 (Version 1)
Quarter: 2013Q2

REPORT INFORMATION
  Report Type: Spontaneous
  Country: DE (occurrence: DE)
  Receive Date: 20130507
  Receipt Date: 20130507
  Transmission Date: 20140414
  Serious: Yes (Hospitalization)
  Sender: FDA-Public Use
  Company Number: DE-ELI_LILLY_AND_COMPANY-DE201304008291

PATIENT
  Sex: Male
  Weight: 75 kg

DRUGS (4)
  1. EFIENT [Suspect]
     Indication: ACUTE MYOCARDIAL INFARCTION
     Dosage: 60 MG, UNKNOWN
     Dates: start: 20100930
  2. EFIENT [Suspect]
     Dosage: 10 MG, UNKNOWN
     Dates: end: 20111001
  3. ASPIRIN [Concomitant]
     Dosage: 300-500MG LOADING DOSE
  4. ASPIRIN [Concomitant]
     Dosage: 100 MG, QD

REACTIONS (1)
  - Cystitis haemorrhagic [Recovered/Resolved]
